FAERS Safety Report 18892036 (Version 1)
Quarter: 2021Q1

REPORT INFORMATION
  Report Type: Spontaneous
  Country: BY (occurrence: BY)
  Receive Date: 20210215
  Receipt Date: 20210215
  Transmission Date: 20210420
  Serious: Yes (Life-Threatening, Other)
  Sender: FDA-Public Use
  Company Number: BY-VIIV HEALTHCARE LIMITED-BY2021EME037316

PATIENT
  Sex: Male
  Weight: 65 kg

DRUGS (19)
  1. SOFOSBUVIR [Suspect]
     Active Substance: SOFOSBUVIR
     Indication: HEPATITIS C
     Dosage: 400 MG, QD
     Route: 048
     Dates: start: 20200902
  2. CLOPIDOGREL [Concomitant]
     Active Substance: CLOPIDOGREL BISULFATE
     Indication: BUNDLE BRANCH BLOCK LEFT
  3. ENTEROSEPT [Concomitant]
     Indication: DIARRHOEA
     Dosage: UNK
     Dates: start: 20201002
  4. LINEZOLID. [Suspect]
     Active Substance: LINEZOLID
     Dosage: 300 MG, QD
     Route: 048
     Dates: start: 20201120
  5. SPIRONOLACTONE. [Concomitant]
     Active Substance: SPIRONOLACTONE
     Indication: BUNDLE BRANCH BLOCK LEFT
  6. BEDAQUILINE [Concomitant]
     Active Substance: BEDAQUILINE
     Indication: TUBERCULOSIS
     Dosage: UNK
     Dates: start: 20201002
  7. BISOPROLOL [Concomitant]
     Active Substance: BISOPROLOL
     Indication: ANGINA PECTORIS
     Dosage: UNK
     Dates: start: 20200819
  8. DACLATASVIR. [Concomitant]
     Active Substance: DACLATASVIR
     Indication: HEPATITIS C
     Dosage: UNK
     Dates: start: 20200902
  9. CLOPIDOGREL [Concomitant]
     Active Substance: CLOPIDOGREL BISULFATE
     Indication: ANGINA PECTORIS
     Dosage: UNK
     Dates: start: 20200819
  10. DUOVIR (LAMIVUDINE + ZIDOVUDINE) [Concomitant]
     Indication: HIV INFECTION
     Dosage: UNK
     Dates: start: 20201001
  11. DELAMANID [Suspect]
     Active Substance: DELAMANID
     Indication: TUBERCULOSIS
     Dosage: 200 MG, QD
     Route: 048
     Dates: start: 20200917
  12. LINEZOLID. [Suspect]
     Active Substance: LINEZOLID
     Indication: TUBERCULOSIS
     Dosage: 600 MG, QD
     Route: 048
     Dates: start: 20200917, end: 20201117
  13. COTRIMOXAZOLE [Concomitant]
     Active Substance: SULFAMETHOXAZOLE\TRIMETHOPRIM
     Indication: PRODUCT USED FOR UNKNOWN INDICATION
     Dosage: UNK
     Dates: start: 20200917
  14. TIVICAY [Suspect]
     Active Substance: DOLUTEGRAVIR SODIUM
     Indication: HIV INFECTION
     Dosage: 50 MG, QD
     Route: 048
     Dates: start: 20201001
  15. CYCLOSERINE. [Suspect]
     Active Substance: CYCLOSERINE
     Indication: TUBERCULOSIS
     Dosage: 750 MG, QD
     Route: 048
     Dates: start: 20200917, end: 20201111
  16. SPIRONOLACTONE. [Concomitant]
     Active Substance: SPIRONOLACTONE
     Indication: ANGINA PECTORIS
     Dosage: UNK
     Dates: start: 20200819
  17. BISOPROLOL [Concomitant]
     Active Substance: BISOPROLOL
     Indication: BUNDLE BRANCH BLOCK LEFT
  18. FOLIC ACID. [Concomitant]
     Active Substance: FOLIC ACID
     Indication: ANAEMIA
     Dosage: UNK
     Dates: start: 20200918
  19. CLOFAZIMINE [Concomitant]
     Active Substance: CLOFAZIMINE
     Indication: PRODUCT USED FOR UNKNOWN INDICATION
     Dosage: UNK
     Dates: start: 20200917

REACTIONS (10)
  - Cerebral atrophy [Unknown]
  - Seizure [Unknown]
  - White matter lesion [Unknown]
  - Anaemia [Recovering/Resolving]
  - Metabolic encephalopathy [Unknown]
  - Gastric disorder [Unknown]
  - Pituitary tumour benign [Unknown]
  - Epilepsy [Recovered/Resolved]
  - Polyneuropathy [Unknown]
  - Cerebral microangiopathy [Unknown]
